FAERS Safety Report 7550784-9 (Version None)
Quarter: 2011Q2

REPORT INFORMATION
  Report Type: 
  Country: None (occurrence: None)
  Receive Date: 20110616
  Receipt Date: 20110607
  Transmission Date: 20111010
  Serious: Yes (Hospitalization)
  Sender: FDA-Public Use
  Company Number: IT-JNJFOC-20110604046

PATIENT
  Age: 23 Year
  Sex: Female

DRUGS (2)
  1. LEVOFLOXACIN [Suspect]
     Indication: CELLULITIS
     Route: 048
     Dates: start: 20110416, end: 20110416
  2. PREDNISONE [Suspect]
     Indication: CELLULITIS
     Route: 048
     Dates: start: 20110416, end: 20110416

REACTIONS (4)
  - PARAESTHESIA [None]
  - HYPERSENSITIVITY [None]
  - HYPERAEMIA [None]
  - PRURITUS [None]
